FAERS Safety Report 9233063 (Version 1)
Quarter: 2013Q2

REPORT INFORMATION
  Report Type: Spontaneous
  Country: US (occurrence: None)
  Receive Date: 20130415
  Receipt Date: 20130415
  Transmission Date: 20140414
  Serious: No
  Sender: FDA-Public Use
  Company Number: None

PATIENT
  Age: 46 Year
  Sex: Female

DRUGS (2)
  1. RIBAVIRIN [Suspect]
     Indication: HEPATITIS C
     Route: 048
     Dates: start: 20130214
  2. PEGASYS 180MCG GENENTECH [Suspect]
     Indication: HEPATITIS C
     Dosage: PEGASYS 180MC QW SQ
     Route: 058
     Dates: start: 20130214

REACTIONS (6)
  - Arthralgia [None]
  - Injection site bruising [None]
  - Fatigue [None]
  - Dysgeusia [None]
  - Toothache [None]
  - Dyspnoea [None]
